FAERS Safety Report 9697431 (Version 2)
Quarter: 2013Q4

REPORT INFORMATION
  Report Type: Spontaneous
  Country: US (occurrence: US)
  Receive Date: 20131120
  Receipt Date: 20131219
  Transmission Date: 20140711
  Serious: Yes (Death, Hospitalization, Other)
  Sender: FDA-Public Use
  Company Number: US-MPIJNJ-2013MPI000974

PATIENT
  Age: 60 Year
  Sex: Male

DRUGS (1)
  1. VELCADE [Suspect]
     Indication: PLASMA CELL MYELOMA
     Dosage: 2.37 MG, ON DAYS 1, 4, 8 AND 11 EVERY 21 DAYS
     Route: 058
     Dates: start: 20131007

REACTIONS (2)
  - Pain [Unknown]
  - Plasma cell myeloma [Fatal]
